FAERS Safety Report 5895901-1 (Version None)
Quarter: 2008Q3

REPORT INFORMATION
  Report Type: 
  Country: None (occurrence: None)
  Receive Date: 20080924
  Receipt Date: 20080916
  Transmission Date: 20090109
  Serious: Yes (Hospitalization, Other)
  Sender: FDA-Public Use
  Company Number: US-ELI_LILLY_AND_COMPANY-US200809003776

PATIENT
  Sex: Female

DRUGS (2)
  1. HUMULIN 70/30 [Suspect]
     Dates: start: 20040101
  2. HUMULIN 70/30 [Suspect]
     Dates: start: 20040101

REACTIONS (8)
  - CATARACT [None]
  - FALL [None]
  - GAIT DISTURBANCE [None]
  - GLAUCOMA [None]
  - HEART RATE IRREGULAR [None]
  - INTERVERTEBRAL DISC INJURY [None]
  - NEOPLASM MALIGNANT [None]
  - NERVE INJURY [None]
